FAERS Safety Report 9364578 (Version 1)
Quarter: 2013Q2

REPORT INFORMATION
  Report Type: Spontaneous
  Country: GB (occurrence: None)
  Receive Date: 20130619
  Receipt Date: 20130619
  Transmission Date: 20140414
  Serious: Yes (Hospitalization, Other)
  Sender: FDA-Public Use
  Company Number: AUR-APL-2013-04852

PATIENT
  Age: 56 Year
  Sex: Female
  Weight: 78 kg

DRUGS (3)
  1. AMLODIPINE (AMLODIPINE) [Suspect]
     Indication: HYPERTENSION
     Route: 048
     Dates: start: 20130202, end: 20130430
  2. DOMPERIDONE (DOMPERIDONE) [Concomitant]
  3. OMEPRAZOLE (OMEPRAZOLE) [Concomitant]

REACTIONS (1)
  - Ventricular extrasystoles [None]
